FAERS Safety Report 8618818-8 (Version None)
Quarter: 2012Q3

REPORT INFORMATION
  Report Type: 
  Country: None (occurrence: None)
  Receive Date: 20120824
  Receipt Date: 20120816
  Transmission Date: 20120928
  Serious: Yes (Life-Threatening, Other)
  Sender: FDA-Public Use
  Company Number: IL-JNJFOC-20120809845

PATIENT
  Age: 65 Year
  Sex: Female

DRUGS (3)
  1. FENTANYL [Suspect]
     Route: 062
  2. FENTANYL [Suspect]
     Route: 062
  3. FENTANYL [Suspect]
     Indication: PAIN
     Route: 062

REACTIONS (3)
  - SOMNOLENCE [None]
  - RESPIRATORY ARREST [None]
  - DRUG TOLERANCE [None]
